FAERS Safety Report 16637683 (Version 3)
Quarter: 2019Q3

REPORT INFORMATION
  Report Type: Report from Study
  Country: CN (occurrence: CN)
  Receive Date: 20190726
  Receipt Date: 20190909
  Transmission Date: 20191004
  Serious: Yes (Hospitalization, Other)
  Sender: FDA-Public Use
  Company Number: CN-TAKEDA-2019TUS045073

PATIENT
  Age: 46 Year
  Sex: Female
  Weight: 50 kg

DRUGS (36)
  1. ASPIRIN. [Concomitant]
     Active Substance: ASPIRIN
     Indication: CROHN^S DISEASE
     Dosage: 0.5 GRAM, TID
     Route: 054
     Dates: start: 20190506
  2. CIPROFLOXACIN HYDROCHLORIDE. [Concomitant]
     Active Substance: CIPROFLOXACIN HYDROCHLORIDE
     Dosage: 0.5 GRAM, BID
     Route: 048
     Dates: start: 20190701
  3. POTASSIUM CHLORIDE. [Concomitant]
     Active Substance: POTASSIUM CHLORIDE
     Dosage: 3 GRAM, QD
     Route: 041
     Dates: start: 20190531, end: 20190603
  4. SODIUM CHLORIDE. [Concomitant]
     Active Substance: SODIUM CHLORIDE
     Indication: CROHN^S DISEASE
     Dosage: 250 MILLIGRAM, QD
     Route: 042
     Dates: start: 20190506, end: 20190506
  5. SODIUM CHLORIDE. [Concomitant]
     Active Substance: SODIUM CHLORIDE
     Dosage: 500 MILLIGRAM, QD
     Route: 042
     Dates: start: 20190606, end: 20190606
  6. GLUTATHIONE [Concomitant]
     Active Substance: GLUTATHIONE
     Indication: CROHN^S DISEASE
     Dosage: 0.4 GRAM, TID
     Route: 048
     Dates: start: 20190617, end: 20190701
  7. AVELOX [Concomitant]
     Active Substance: MOXIFLOXACIN HYDROCHLORIDE
     Dosage: 0.4 GRAM, QD
     Route: 042
     Dates: start: 20190524, end: 20190528
  8. SHIOMARIN [Concomitant]
     Active Substance: LATAMOXEF DISODIUM
     Indication: CROHN^S DISEASE
     Dosage: 1 GRAM, BID
     Route: 042
     Dates: start: 20190630, end: 20190701
  9. METRONIDAZOLE. [Concomitant]
     Active Substance: METRONIDAZOLE
     Indication: CROHN^S DISEASE
     Dosage: 0.4 GRAM, TID
     Route: 048
     Dates: start: 20190514
  10. POTASSIUM CHLORIDE. [Concomitant]
     Active Substance: POTASSIUM CHLORIDE
     Indication: CROHN^S DISEASE
     Dosage: 3 GRAM, QD
     Route: 042
     Dates: start: 20190506, end: 20190506
  11. POTASSIUM CHLORIDE. [Concomitant]
     Active Substance: POTASSIUM CHLORIDE
     Dosage: 3 GRAM, QD
     Route: 041
     Dates: start: 20190524, end: 20190526
  12. GLUCOSE [Concomitant]
     Active Substance: DEXTROSE
     Dosage: 500 MILLIGRAM, QD
     Route: 042
     Dates: start: 20190515, end: 20190520
  13. GLUCOSE [Concomitant]
     Active Substance: DEXTROSE
     Dosage: 500 MILLIGRAM, QD
     Route: 042
     Dates: start: 20190524, end: 20190603
  14. SODIUM CHLORIDE. [Concomitant]
     Active Substance: SODIUM CHLORIDE
     Dosage: 500 MILLIGRAM, QD
     Route: 042
     Dates: start: 20190515, end: 20190520
  15. AVELOX [Concomitant]
     Active Substance: MOXIFLOXACIN HYDROCHLORIDE
     Indication: CROHN^S DISEASE
     Dosage: 0.4 GRAM, QD
     Route: 042
     Dates: start: 20190506, end: 20190514
  16. VEDOLIZUMAB [Suspect]
     Active Substance: VEDOLIZUMAB
     Indication: CROHN^S DISEASE
     Dosage: UNK
     Route: 042
     Dates: start: 20181101
  17. POTASSIUM CHLORIDE. [Concomitant]
     Active Substance: POTASSIUM CHLORIDE
     Dosage: 1.5 GRAM, QD
     Route: 041
     Dates: start: 20190628, end: 20190701
  18. SODIUM CHLORIDE. [Concomitant]
     Active Substance: SODIUM CHLORIDE
     Dosage: 500 MILLIGRAM, QD
     Route: 042
     Dates: start: 20190524, end: 20190603
  19. LOPERAMIDE HYDROCHLORIDE. [Concomitant]
     Active Substance: LOPERAMIDE HYDROCHLORIDE
     Indication: CROHN^S DISEASE
     Dosage: 2 MILLIGRAM, Q4HR
     Route: 048
     Dates: start: 20190529, end: 20190531
  20. GLUCOSE [Concomitant]
     Active Substance: DEXTROSE
     Dosage: 500 MILLIGRAM, QD
     Route: 042
     Dates: start: 20190606, end: 20190606
  21. CIPROFLOXACIN LACTATE [Concomitant]
     Active Substance: CIPROFLOXACIN LACTATE
     Indication: CROHN^S DISEASE
     Dosage: 0.4 GRAM, QD
     Route: 042
     Dates: start: 20190610, end: 20190611
  22. CIPROFLOXACIN HYDROCHLORIDE. [Concomitant]
     Active Substance: CIPROFLOXACIN HYDROCHLORIDE
     Indication: CROHN^S DISEASE
     Dosage: 0.5 GRAM, BID
     Route: 048
     Dates: start: 20190514
  23. LOPERAMIDE HYDROCHLORIDE. [Concomitant]
     Active Substance: LOPERAMIDE HYDROCHLORIDE
     Dosage: 2 MILLIGRAM, TID
     Route: 048
     Dates: start: 20190614, end: 20190620
  24. GLUCOSE [Concomitant]
     Active Substance: DEXTROSE
     Dosage: 500 MILLIGRAM, QD
     Route: 042
     Dates: start: 20190524, end: 20190603
  25. SODIUM CHLORIDE. [Concomitant]
     Active Substance: SODIUM CHLORIDE
     Dosage: 500 MILLIGRAM, QD
     Route: 042
     Dates: start: 20190628, end: 20190701
  26. GLUCOSE [Concomitant]
     Active Substance: DEXTROSE
     Dosage: 500 MILLIGRAM, QD
     Route: 042
     Dates: start: 20190628, end: 20190701
  27. SOMATOSTATIN [Concomitant]
     Active Substance: SOMATOSTATIN
     Dosage: 6 MILLIGRAM, QD
     Route: 042
     Dates: start: 20190624, end: 20190627
  28. LOPERAMIDE HYDROCHLORIDE. [Concomitant]
     Active Substance: LOPERAMIDE HYDROCHLORIDE
     Indication: CROHN^S DISEASE
     Dosage: 2 MILLIGRAM, QID
     Route: 048
     Dates: start: 20190520
  29. GLUCOSE [Concomitant]
     Active Substance: DEXTROSE
     Dosage: 500 MILLIGRAM, QD
     Route: 042
     Dates: start: 20190627, end: 20190627
  30. URSODEOXYCHOLIC ACID [Concomitant]
     Active Substance: URSODIOL
     Indication: CROHN^S DISEASE
     Dosage: 500 MILLIGRAM, QD
     Route: 048
     Dates: start: 20190617, end: 20190630
  31. GLUCOSE [Concomitant]
     Active Substance: DEXTROSE
     Indication: CROHN^S DISEASE
     Dosage: 250 MILLIGRAM, QD
     Route: 042
     Dates: start: 20190506, end: 20190506
  32. CIPROFLOXACIN LACTATE [Concomitant]
     Active Substance: CIPROFLOXACIN LACTATE
     Dosage: 0.4 GRAM, QD
     Route: 042
     Dates: start: 20190617, end: 20190701
  33. SOMATOSTATIN [Concomitant]
     Active Substance: SOMATOSTATIN
     Indication: CROHN^S DISEASE
     Dosage: 6 MILLIGRAM, QD
     Route: 042
     Dates: start: 20190618, end: 20190622
  34. AVELOX [Concomitant]
     Active Substance: MOXIFLOXACIN HYDROCHLORIDE
     Dosage: 0.4 GRAM, QD
     Route: 042
     Dates: start: 20190618, end: 20190627
  35. SULPERAZON [Concomitant]
     Active Substance: CEFOPERAZONE SODIUM\SULBACTAM SODIUM
     Indication: CROHN^S DISEASE
     Dosage: 3 GRAM
     Route: 042
     Dates: start: 20190627, end: 20190630
  36. NEXIUM [Concomitant]
     Active Substance: ESOMEPRAZOLE MAGNESIUM
     Indication: CROHN^S DISEASE
     Dosage: 20 MILLIGRAM, BID
     Route: 048
     Dates: start: 20190701

REACTIONS (1)
  - Gastrointestinal haemorrhage [Recovered/Resolved]

NARRATIVE: CASE EVENT DATE: 20190717
